FAERS Safety Report 7540931-7 (Version None)
Quarter: 2011Q2

REPORT INFORMATION
  Report Type: 
  Country: None (occurrence: None)
  Receive Date: 20110610
  Receipt Date: 20110608
  Transmission Date: 20111010
  Serious: Yes (Life-Threatening, Hospitalization)
  Sender: FDA-Public Use
  Company Number: US-B.I. PHARMACEUTICALS,INC./RIDGEFIELD-2011-BP-08903BP

PATIENT
  Age: 60 Year
  Sex: Male
  Weight: 114.76 kg

DRUGS (4)
  1. DILTIAZEM [Concomitant]
     Dosage: 180 MG
     Dates: start: 20101210
  2. OMEPRAZOLE [Concomitant]
     Dosage: 20 MG
     Dates: start: 20101210
  3. LISINOPRIL [Concomitant]
     Dosage: 5 MG
     Dates: start: 20101210
  4. PRADAXA [Suspect]
     Indication: ATRIAL FIBRILLATION
     Dosage: 300 MG
     Route: 048
     Dates: start: 20101203, end: 20110315

REACTIONS (2)
  - THROMBOCYTOPENIA [None]
  - PLATELET COUNT DECREASED [None]
